FAERS Safety Report 5049678-2 (Version None)
Quarter: 2006Q3

REPORT INFORMATION
  Report Type: 
  Country: None (occurrence: None)
  Receive Date: 20060706
  Receipt Date: 20060628
  Transmission Date: 20061208
  Serious: Yes (Death, Hospitalization)
  Sender: FDA-Public Use
  Company Number: 200611960GDS

PATIENT
  Age: 47 Year
  Sex: Female
  Weight: 61.5 kg

DRUGS (15)
  1. SORAFENIB [Suspect]
     Indication: MALIGNANT MELANOMA
     Dosage: 400 MG, BID, ORAL
     Route: 048
     Dates: start: 20060401, end: 20060602
  2. FENTANYL TRANSDERMAL SYSTEM [Concomitant]
  3. MS CONTIN [Concomitant]
  4. GABAPENTIN [Concomitant]
  5. ORDINE [Concomitant]
  6. DEXAMETHASONE TAB [Concomitant]
  7. DOTHIEPIN HYDROCHLORIDE [Concomitant]
  8. ACETAMINOPHEN [Concomitant]
  9. BRUFEN [Concomitant]
  10. PRAMIN [Concomitant]
  11. FUROSEMIDE [Concomitant]
  12. TRIMETHOPRIM [Concomitant]
  13. SOMAC [Concomitant]
  14. LORAZEPAM [Concomitant]
  15. KETAMINE HCL [Concomitant]

REACTIONS (10)
  - AGITATION [None]
  - CEREBRAL HAEMORRHAGE [None]
  - DISCOMFORT [None]
  - DISEASE PROGRESSION [None]
  - GRAND MAL CONVULSION [None]
  - MUSCLE TWITCHING [None]
  - NEUROPATHY PERIPHERAL [None]
  - PAIN [None]
  - UNRESPONSIVE TO STIMULI [None]
  - VOMITING [None]
